FAERS Safety Report 7249541-2 (Version None)
Quarter: 2011Q1

REPORT INFORMATION
  Report Type: 
  Country: None (occurrence: None)
  Receive Date: 20110119
  Receipt Date: 20110119
  Transmission Date: 20110831
  Serious: Yes (Hospitalization)
  Sender: FDA-Public Use
  Company Number: 111445

PATIENT
  Age: 33 Year
  Sex: Female

DRUGS (1)
  1. DOXYCYCLINE [Suspect]
     Indication: VAGINAL INFECTION
     Dosage: 500MG/TWICE DAILY

REACTIONS (1)
  - PANCREATITIS ACUTE [None]
